FAERS Safety Report 9169941 (Version 1)
Quarter: 2013Q1

REPORT INFORMATION
  Report Type: Spontaneous
  Country: US (occurrence: None)
  Receive Date: 20130314
  Receipt Date: 20130314
  Transmission Date: 20140127
  Serious: Yes (Hospitalization, Other)
  Sender: FDA-Public Use
  Company Number: None

PATIENT
  Age: 55 Year
  Sex: Male
  Weight: 90.72 kg

DRUGS (1)
  1. LISINOPRIL [Suspect]
     Indication: HYPERTENSION
     Dates: start: 20130209, end: 20130215

REACTIONS (7)
  - Local swelling [None]
  - Dry throat [None]
  - Urticaria [None]
  - Pain in extremity [None]
  - Hypoaesthesia [None]
  - Liver injury [None]
  - Renal injury [None]
